FAERS Safety Report 16214509 (Version 2)
Quarter: 2019Q2

REPORT INFORMATION
  Report Type: Spontaneous
  Country: US (occurrence: US)
  Receive Date: 20190418
  Receipt Date: 20190617
  Transmission Date: 20190711
  Serious: Yes (Other)
  Sender: FDA-Public Use
  Company Number: US-VIFOR (INTERNATIONAL) INC.-VIT-2019-03623

PATIENT
  Age: 45 Year
  Sex: Female
  Weight: 79 kg

DRUGS (21)
  1. FOLIC ACID. [Concomitant]
     Active Substance: FOLIC ACID
     Route: 048
  2. MIRCERA [Suspect]
     Active Substance: METHOXY POLYETHYLENE GLYCOL-EPOETIN BETA
     Indication: NEPHROGENIC ANAEMIA
     Route: 058
     Dates: start: 20190311, end: 20190311
  3. GENTAMICIN. [Concomitant]
     Active Substance: GENTAMICIN
     Route: 061
  4. SENSIPAR [Concomitant]
     Active Substance: CINACALCET HYDROCHLORIDE
     Route: 048
  5. HUMALOG U [Concomitant]
     Dosage: 100 UNITS/ML.
     Route: 058
  6. AMLODIPINE [Concomitant]
     Active Substance: AMLODIPINE BESYLATE
     Route: 048
  7. CALCITRIOL. [Concomitant]
     Active Substance: CALCITRIOL
     Route: 048
  8. ERGOCALCIFEROL. [Concomitant]
     Active Substance: ERGOCALCIFEROL
     Route: 048
  9. HYDROCHLOROTHIAZIDE. [Concomitant]
     Active Substance: HYDROCHLOROTHIAZIDE
     Route: 048
  10. ASPIRIN. [Concomitant]
     Active Substance: ASPIRIN
     Route: 048
  11. ATORVASTATIN [Concomitant]
     Active Substance: ATORVASTATIN
     Route: 048
  12. BASAGLAR [Concomitant]
     Active Substance: INSULIN GLARGINE
     Dosage: 100 UNITS/ML (3 ML)
     Route: 058
  13. HUMULIN R [Concomitant]
     Active Substance: INSULIN HUMAN
     Dosage: 100 UNITS/ML.
     Route: 040
  14. VELPHORO [Concomitant]
     Active Substance: FERRIC OXYHYDROXIDE
     Indication: PRODUCT USED FOR UNKNOWN INDICATION
     Route: 048
  15. FERROUS SULFATE. [Concomitant]
     Active Substance: FERROUS SULFATE
     Route: 048
  16. POTASSIUM CHLORIDE. [Concomitant]
     Active Substance: POTASSIUM CHLORIDE
     Route: 048
  17. DIALYVITE [Concomitant]
     Active Substance: ASCORBIC ACID\BIOTIN\CALCIUM PANTOTHENATE\COBALAMIN\FOLIC ACID\NIACINAMIDE\PYRIDOXINE HYDROCHLORIDE\RIBOFLAVIN\THIAMINE MONONITRATE
     Dosage: 1 MG-100 MG-300 MCG-50 MG
     Route: 048
  18. HEPARIN [Concomitant]
     Active Substance: HEPARIN SODIUM
     Dosage: 1000UNIT/ML.. INJECT 1 CC PER 2 L.
  19. LOSARTAN. [Concomitant]
     Active Substance: LOSARTAN
     Route: 048
  20. OMEGA 3 [Concomitant]
     Active Substance: OMEGA-3 FATTY ACIDS
     Route: 048
  21. LEVEMIR [Concomitant]
     Active Substance: INSULIN DETEMIR
     Dosage: 100 UNITS/ML.
     Route: 058

REACTIONS (7)
  - Drug hypersensitivity [Recovered/Resolved]
  - Swelling face [Unknown]
  - Swollen tongue [Unknown]
  - Dysphagia [Unknown]
  - Pruritus [Unknown]
  - Loss of consciousness [Unknown]
  - Lip swelling [Unknown]

NARRATIVE: CASE EVENT DATE: 20190312
